FAERS Safety Report 7805096-2 (Version None)
Quarter: 2011Q4

REPORT INFORMATION
  Report Type: 
  Country: None (occurrence: None)
  Receive Date: 20111010
  Receipt Date: 20111004
  Transmission Date: 20120403
  Serious: Yes (Other)
  Sender: FDA-Public Use
  Company Number: GB-B.I. PHARMACEUTICALS,INC./RIDGEFIELD-2011-UK-01060UK

PATIENT
  Age: 75 Year
  Sex: Male
  Weight: 107 kg

DRUGS (7)
  1. OXYCODONE HCL [Concomitant]
     Dosage: 60 MG
     Route: 048
     Dates: start: 20110328, end: 20110403
  2. MOVIPREP [Concomitant]
     Route: 048
  3. ACETAMINOPHEN [Concomitant]
     Route: 048
     Dates: start: 20110328, end: 20110403
  4. PRADAXA [Suspect]
     Indication: PROPHYLAXIS
     Dosage: 150 MG
     Route: 048
     Dates: start: 20110329, end: 20110427
  5. PRADAXA [Suspect]
     Indication: KNEE ARTHROPLASTY
  6. AMITRIPTYLINE HCL [Concomitant]
     Dosage: 50 MG
     Route: 048
  7. GENTAMICIN [Concomitant]
     Dosage: 80 MG
     Route: 030
     Dates: start: 20110328, end: 20110403

REACTIONS (2)
  - DRUG INEFFECTIVE [None]
  - DEEP VEIN THROMBOSIS [None]
